FAERS Safety Report 20207889 (Version 1)
Quarter: 2021Q4

REPORT INFORMATION
  Report Type: Spontaneous
  Country: US (occurrence: None)
  Receive Date: 20211220
  Receipt Date: 20211220
  Transmission Date: 20220303
  Serious: Yes (Disabling)
  Sender: FDA-Public Use
  Company Number: None

PATIENT
  Age: 65 Year
  Sex: Female
  Weight: 63 kg

DRUGS (1)
  1. CIPROFLOXACIN [Suspect]
     Active Substance: CIPROFLOXACIN
     Indication: Diverticulitis
     Dosage: FREQUENCY : EVERY 12 HOURS;?
     Route: 048
     Dates: start: 20211201, end: 20211207

REACTIONS (9)
  - Myalgia [None]
  - Joint range of motion decreased [None]
  - Myalgia [None]
  - Pain in extremity [None]
  - Arthralgia [None]
  - Bursitis [None]
  - Condition aggravated [None]
  - Arthralgia [None]
  - Product complaint [None]

NARRATIVE: CASE EVENT DATE: 20211206
